FAERS Safety Report 25749224 (Version 2)
Quarter: 2025Q4

REPORT INFORMATION
  Report Type: Report from Study
  Country: CA (occurrence: CA)
  Receive Date: 20250902
  Receipt Date: 20251020
  Transmission Date: 20260117
  Serious: Yes (Hospitalization)
  Sender: SAMSUNG BIOEPIS
  Company Number: CA-SAMSUNG BIOEPIS-SB-2025-29373

PATIENT
  Age: 69 Year
  Sex: Female

DRUGS (7)
  1. HADLIMA [Suspect]
     Active Substance: ADALIMUMAB-BWWD
     Indication: Psoriasis
     Dosage: 40 MG/0.4ML;
     Dates: start: 20250604, end: 202506
  2. HADLIMA [Suspect]
     Active Substance: ADALIMUMAB-BWWD
     Dosage: 40 MG/0.4ML;
     Dates: start: 20250902
  3. METHOTREXATE [Concomitant]
     Active Substance: METHOTREXATE
     Indication: Product used for unknown indication
     Route: 048
  4. ESCITALOPRAM [Concomitant]
     Active Substance: ESCITALOPRAM OXALATE
     Indication: Product used for unknown indication
  5. INDAPAMIDE\PERINDOPRIL [Concomitant]
     Active Substance: INDAPAMIDE\PERINDOPRIL
     Indication: Product used for unknown indication
     Dosage: 8/2.5 MG DAILY;
  6. PANTOPRAZOLE [Concomitant]
     Active Substance: PANTOPRAZOLE
     Indication: Product used for unknown indication
  7. SYNTHROID [Concomitant]
     Active Substance: LEVOTHYROXINE SODIUM
     Indication: Product used for unknown indication

REACTIONS (1)
  - Myocardial infarction [Recovered/Resolved]

NARRATIVE: CASE EVENT DATE: 20250620
